FAERS Safety Report 10610359 (Version 2)
Quarter: 2014Q4

REPORT INFORMATION
  Report Type: Spontaneous
  Country: JP (occurrence: JP)
  Receive Date: 20141126
  Receipt Date: 20141215
  Transmission Date: 20150529
  Serious: Yes (Death, Hospitalization)
  Sender: FDA-Public Use
  Company Number: JP-SA-2014SA159666

PATIENT
  Age: 68 Year
  Sex: Male

DRUGS (6)
  1. PEMETREXED [Concomitant]
     Active Substance: PEMETREXED
     Indication: LUNG ADENOCARCINOMA METASTATIC
     Dosage: MAINTENANCE THERAPY
  2. CARBOPLATIN. [Concomitant]
     Active Substance: CARBOPLATIN
     Indication: LUNG ADENOCARCINOMA METASTATIC
     Dosage: 6 COURSES
  3. BEVACIZUMAB [Concomitant]
     Active Substance: BEVACIZUMAB
     Indication: LUNG ADENOCARCINOMA METASTATIC
     Dosage: 6 COURSES
  4. BEVACIZUMAB [Concomitant]
     Active Substance: BEVACIZUMAB
     Indication: LUNG ADENOCARCINOMA METASTATIC
     Dosage: MAINTENANCE THERAPY
  5. DOCETAXEL. [Suspect]
     Active Substance: DOCETAXEL
     Indication: LUNG ADENOCARCINOMA METASTATIC
     Dosage: RECEIVED 3 COURSES
     Route: 065
  6. PEMETREXED [Concomitant]
     Active Substance: PEMETREXED
     Indication: LUNG ADENOCARCINOMA METASTATIC
     Dosage: 6 COURSES

REACTIONS (2)
  - Respiratory disorder [Fatal]
  - Interstitial lung disease [Fatal]
